FAERS Safety Report 20842818 (Version 1)
Quarter: 2022Q2

REPORT INFORMATION
  Report Type: Spontaneous
  Country: GB (occurrence: None)
  Receive Date: 20220518
  Receipt Date: 20220518
  Transmission Date: 20220721
  Serious: Yes (Other)
  Sender: FDA-Public Use
  Company Number: GB-ROCHE-3099344

PATIENT

DRUGS (3)
  1. TRASTUZUMAB [Suspect]
     Active Substance: TRASTUZUMAB
     Indication: HER2 positive breast cancer
     Route: 065
     Dates: start: 202103
  2. CAPECITABINE [Suspect]
     Active Substance: CAPECITABINE
     Indication: HER2 positive breast cancer
     Route: 065
     Dates: start: 202103
  3. TUKYSA [Suspect]
     Active Substance: TUCATINIB
     Indication: HER2 positive breast cancer
     Route: 065
     Dates: start: 202103

REACTIONS (8)
  - Metastases to central nervous system [Not Recovered/Not Resolved]
  - Thrombocytopenia [Recovered/Resolved]
  - Swelling face [Unknown]
  - Myopathy [Unknown]
  - Neurological symptom [Unknown]
  - Radiotherapy [Unknown]
  - Cushingoid [Unknown]
  - Wheelchair user [Unknown]

NARRATIVE: CASE EVENT DATE: 20220201
